FAERS Safety Report 15836338 (Version 3)
Quarter: 2019Q1

REPORT INFORMATION
  Report Type: Spontaneous
  Country: ZA (occurrence: ZA)
  Receive Date: 20190117
  Receipt Date: 20190208
  Transmission Date: 20190417
  Serious: Yes (Congenital Anomaly)
  Sender: FDA-Public Use
  Company Number: ZA-AUROBINDO-AUR-APL-2019-001255

PATIENT

DRUGS (3)
  1. FOLATE SODIUM [Suspect]
     Active Substance: FOLATE SODIUM
     Indication: PRODUCT USED FOR UNKNOWN INDICATION
     Route: 064
  2. BACTRIM [Suspect]
     Active Substance: SULFAMETHOXAZOLE\TRIMETHOPRIM
     Indication: PRODUCT USED FOR UNKNOWN INDICATION
     Route: 064
  3. EFAVIRENZ+EMTRICITABINE+TENOFOVIR [Suspect]
     Active Substance: EFAVIRENZ\EMTRICITABINE\TENOFOVIR DISOPROXIL FUMARATE
     Indication: HIV INFECTION
     Dosage: 1 DOSAGE FORM, DAILY
     Route: 064
     Dates: start: 20180524

REACTIONS (2)
  - Congenital acrochordon [Unknown]
  - Foetal exposure during pregnancy [Unknown]
